FAERS Safety Report 11046259 (Version 2)
Quarter: 2015Q2

REPORT INFORMATION
  Report Type: Report from Study
  Country: MX (occurrence: MX)
  Receive Date: 20150418
  Receipt Date: 20150504
  Transmission Date: 20150821
  Serious: Yes (Disabling, Other)
  Sender: FDA-Public Use
  Company Number: PHHY2015MX043360

PATIENT
  Sex: Male

DRUGS (1)
  1. ACLASTA [Suspect]
     Active Substance: ZOLEDRONIC ACID
     Indication: OSTEOPENIA
     Dosage: UNK, ANNUALLY
     Route: 065
     Dates: start: 2012

REACTIONS (12)
  - Eye inflammation [Unknown]
  - Vision blurred [Unknown]
  - Haemorrhage [Not Recovered/Not Resolved]
  - Cataract [Not Recovered/Not Resolved]
  - Photopsia [Unknown]
  - Retinal detachment [Unknown]
  - Diplopia [Unknown]
  - Retinal tear [Unknown]
  - Photophobia [Unknown]
  - Eye pain [Unknown]
  - Blood pressure increased [Not Recovered/Not Resolved]
  - Blindness unilateral [Not Recovered/Not Resolved]
